FAERS Safety Report 18656632 (Version 3)
Quarter: 2021Q1

REPORT INFORMATION
  Report Type: Spontaneous
  Country: US (occurrence: US)
  Receive Date: 20201224
  Receipt Date: 20210203
  Transmission Date: 20210419
  Serious: Yes (Hospitalization, Other)
  Sender: FDA-Public Use
  Company Number: US-DECIPHERA PHARMACEUTICALS LLC-2020-US-000724

PATIENT
  Age: 71 Year
  Sex: Male

DRUGS (1)
  1. QINLOCK [Suspect]
     Active Substance: RIPRETINIB
     Indication: GASTROINTESTINAL STROMAL TUMOUR
     Dosage: 150 MILLIGRAM, QD
     Route: 048

REACTIONS (6)
  - Hospitalisation [Recovered/Resolved]
  - Tumour excision [Recovered/Resolved]
  - Dry mouth [Unknown]
  - Pain [Unknown]
  - Urinary retention [Unknown]
  - Dyschezia [Unknown]

NARRATIVE: CASE EVENT DATE: 202012
